FAERS Safety Report 6186991-X (Version None)
Quarter: 2009Q2

REPORT INFORMATION
  Report Type: 
  Country: None (occurrence: None)
  Receive Date: 20090508
  Receipt Date: 20090508
  Transmission Date: 20091009
  Serious: Yes (Life-Threatening, Other)
  Sender: FDA-Public Use
  Company Number: None

PATIENT
  Age: 18 Year
  Sex: Female
  Weight: 54.4316 kg

DRUGS (3)
  1. CYMBALTA [Suspect]
     Indication: DEPRESSION
     Dosage: ONE CAPSULE DAILY PO
     Route: 048
     Dates: start: 20090329, end: 20090508
  2. CYMBALTA [Suspect]
     Indication: INSOMNIA
     Dosage: ONE CAPSULE DAILY PO
     Route: 048
     Dates: start: 20090329, end: 20090508
  3. CYMBALTA [Suspect]
     Indication: PALPITATIONS
     Dosage: ONE CAPSULE DAILY PO
     Route: 048
     Dates: start: 20090329, end: 20090508

REACTIONS (2)
  - FEELING ABNORMAL [None]
  - VICTIM OF SEXUAL ABUSE [None]
